FAERS Safety Report 6599624-5 (Version None)
Quarter: 2010Q1

REPORT INFORMATION
  Report Type: 
  Country: None (occurrence: None)
  Receive Date: 20100217
  Receipt Date: 20100205
  Transmission Date: 20100710
  Serious: Yes (Hospitalization)
  Sender: FDA-Public Use
  Company Number: 236533K09USA

PATIENT
  Age: 53 Year
  Sex: Female
  Weight: 61 kg

DRUGS (11)
  1. REBIF [Suspect]
     Indication: MULTIPLE SCLEROSIS
     Dosage: 44 MCG, 3 IN 1 WEEKS, SUBCUTANEOUS
     Route: 058
     Dates: start: 20040705
  2. DEPO-PROVERA [Suspect]
     Dates: start: 19980101, end: 20080901
  3. PROVIGIL [Concomitant]
  4. ATENOLOL [Concomitant]
  5. DIOVAN [Concomitant]
  6. IRON SUPPLEMENT (IRON) [Concomitant]
  7. ZOLOFT [Concomitant]
  8. NEURONTIN [Concomitant]
  9. CRESTOR [Concomitant]
  10. SYNTHROID [Concomitant]
  11. INSULIN (INSULIN) [Concomitant]

REACTIONS (9)
  - ABASIA [None]
  - COMMUNICATION DISORDER [None]
  - DEPRESSION [None]
  - EATING DISORDER [None]
  - HEMIPLEGIA [None]
  - MENINGIOMA BENIGN [None]
  - MULTIPLE SCLEROSIS [None]
  - NAUSEA [None]
  - POST PROCEDURAL INFECTION [None]
